FAERS Safety Report 6671666-0 (Version None)
Quarter: 2010Q2

REPORT INFORMATION
  Report Type: 
  Country: None (occurrence: None)
  Receive Date: 20100407
  Receipt Date: 20100401
  Transmission Date: 20101027
  Serious: Yes (Other)
  Sender: FDA-Public Use
  Company Number: US-PURDUE-USA-2010-0043096

PATIENT
  Age: 40 Year
  Sex: Female

DRUGS (2)
  1. OXYCONTIN [Suspect]
     Indication: BACK PAIN
     Dosage: UNK
     Dates: start: 20030101
  2. TOPAMAX [Concomitant]
     Indication: CONVULSION
     Dosage: UNK

REACTIONS (2)
  - IMPAIRED DRIVING ABILITY [None]
  - TOOTH LOSS [None]
